FAERS Safety Report 17299185 (Version 2)
Quarter: 2020Q2

REPORT INFORMATION
  Report Type: Spontaneous
  Country: JP (occurrence: JP)
  Receive Date: 20200121
  Receipt Date: 20200511
  Transmission Date: 20200713
  Serious: Yes (Death, Other)
  Sender: FDA-Public Use
  Company Number: NVSJ2020JP000464

PATIENT
  Age: 85 Year
  Sex: Female

DRUGS (3)
  1. RIFAMPICIN [Suspect]
     Active Substance: RIFAMPIN
     Indication: PULMONARY TUBERCULOSIS
     Dosage: UNK
     Route: 065
  2. ISONIAZID. [Concomitant]
     Active Substance: ISONIAZID
     Indication: PULMONARY TUBERCULOSIS
     Dosage: UNK
     Route: 065
  3. ETHAMBUTOL [Concomitant]
     Active Substance: ETHAMBUTOL HYDROCHLORIDE
     Indication: PULMONARY TUBERCULOSIS
     Dosage: UNK
     Route: 065

REACTIONS (9)
  - Mechanical ileus [Unknown]
  - Cardiac failure [Unknown]
  - Dehydration [Unknown]
  - Ventricular hypertrophy [Unknown]
  - Dysphagia [Unknown]
  - General physical health deterioration [Unknown]
  - Disseminated tuberculosis [Fatal]
  - Skin mass [Unknown]
  - Hypoglycaemia [Unknown]
